FAERS Safety Report 4962290-6 (Version None)
Quarter: 2006Q2

REPORT INFORMATION
  Report Type: 
  Country: None (occurrence: None)
  Receive Date: 20060404
  Receipt Date: 20050719
  Transmission Date: 20061013
  Serious: No
  Sender: FDA-Public Use
  Company Number: US-BRISTOL-MYERS SQUIBB COMPANY-13042924

PATIENT
  Sex: Female
  Weight: 68 kg

DRUGS (4)
  1. HYDROXYUREA [Suspect]
     Indication: THROMBOCYTHAEMIA
  2. PLAVIX [Suspect]
  3. LIPITOR [Concomitant]
  4. ASPIRIN [Concomitant]

REACTIONS (2)
  - HEADACHE [None]
  - VISUAL DISTURBANCE [None]
